FAERS Safety Report 4325399-6 (Version None)
Quarter: 2004Q1

REPORT INFORMATION
  Report Type: 
  Country: None (occurrence: None)
  Receive Date: 20040324
  Receipt Date: 20040315
  Transmission Date: 20041129
  Serious: Yes (Hospitalization)
  Sender: FDA-Public Use
  Company Number: 200410037BFR

PATIENT
  Age: 40 Year
  Sex: Male

DRUGS (3)
  1. IZILOX (MOXIFLOXACIN HYDROCHLORIDE) [Suspect]
     Indication: SINUSITIS
     Dosage: 400 MG, TOTAL DAILY, ORAL
     Route: 048
     Dates: start: 20040109, end: 20040114
  2. RHINOFLUIMUCIL [Concomitant]
  3. TAHOR [Concomitant]

REACTIONS (2)
  - DEAFNESS [None]
  - TINNITUS [None]
